FAERS Safety Report 19433451 (Version 1)
Quarter: 2021Q2

REPORT INFORMATION
  Report Type: Not Available
  Country: US (occurrence: US)
  Receive Date: 20210617
  Receipt Date: 20210617
  Transmission Date: 20210717
  Serious: No
  Sender: FDA-Public Use
  Company Number: US-C B FLEET CO INC-202104-US-001476

PATIENT
  Sex: Female

DRUGS (1)
  1. NIX COMPLETE MAXIMUM STRENGTH LICE ELIMINATION [Suspect]
     Active Substance: PERMETHRIN
     Indication: LICE INFESTATION
     Dosage: APPLIED ONE TIME
     Route: 061

REACTIONS (1)
  - Hair texture abnormal [Recovering/Resolving]
